FAERS Safety Report 15279621 (Version 3)
Quarter: 2019Q1

REPORT INFORMATION
  Report Type: Spontaneous
  Country: US (occurrence: US)
  Receive Date: 20180815
  Receipt Date: 20190122
  Transmission Date: 20190417
  Serious: No
  Sender: FDA-Public Use
  Company Number: US-PFIZER INC-2018327803

PATIENT
  Age: 79 Year
  Sex: Female
  Weight: 73 kg

DRUGS (2)
  1. IBRANCE [Suspect]
     Active Substance: PALBOCICLIB
     Indication: BREAST CANCER METASTATIC
     Dosage: 125 MG, CYCLIC (D1-21 Q28 DAYS)
     Route: 048
     Dates: start: 20180720, end: 2018
  2. IBRANCE [Suspect]
     Active Substance: PALBOCICLIB
     Dosage: 125 MG, CYCLIC (D1-21 Q28 DAYS)
     Route: 048
     Dates: start: 20180924, end: 201812

REACTIONS (3)
  - Neoplasm progression [Unknown]
  - Neck pain [Unknown]
  - Rash [Unknown]

NARRATIVE: CASE EVENT DATE: 2018
